FAERS Safety Report 5120896-8 (Version None)
Quarter: 2006Q4

REPORT INFORMATION
  Report Type: 
  Country: None (occurrence: None)
  Receive Date: 20061002
  Receipt Date: 20060913
  Transmission Date: 20070319
  Serious: Yes (Other)
  Sender: FDA-Public Use
  Company Number: 2006SP001398

PATIENT
  Sex: Male

DRUGS (2)
  1. NOXAFIL [Suspect]
     Indication: ASPERGILLOSIS
     Dosage: 400 MG; BID; PO
     Route: 048
  2. ANTIBIOTICS [Concomitant]

REACTIONS (1)
  - CHOLESTASIS [None]
